FAERS Safety Report 19484835 (Version 1)
Quarter: 2021Q3

REPORT INFORMATION
  Report Type: Spontaneous
  Country: US (occurrence: US)
  Receive Date: 20210702
  Receipt Date: 20210702
  Transmission Date: 20211014
  Serious: No
  Sender: FDA-Public Use
  Company Number: US-SA-2021SA213550

PATIENT
  Sex: Female

DRUGS (14)
  1. DUPIXENT [Suspect]
     Active Substance: DUPILUMAB
     Indication: ASTHMA
     Dosage: 300 MG, QOW
     Route: 058
     Dates: start: 202102
  2. INDOMETHACIN [INDOMETACIN] [Concomitant]
     Active Substance: INDOMETHACIN
  3. MELOXICAM. [Concomitant]
     Active Substance: MELOXICAM
  4. EPIPEN [Concomitant]
     Active Substance: EPINEPHRINE
  5. IPRATROPIUM BROMIDE. [Concomitant]
     Active Substance: IPRATROPIUM BROMIDE
  6. QVAR REDIHALER [Concomitant]
     Active Substance: BECLOMETHASONE DIPROPIONATE
  7. ANORO ELLIPTA [Concomitant]
     Active Substance: UMECLIDINIUM BROMIDE\VILANTEROL TRIFENATATE
  8. DULOXETINE. [Concomitant]
     Active Substance: DULOXETINE
  9. VALSARTAN. [Concomitant]
     Active Substance: VALSARTAN
  10. AZELASTINE. [Concomitant]
     Active Substance: AZELASTINE HYDROCHLORIDE
  11. DIAZEPAM. [Concomitant]
     Active Substance: DIAZEPAM
  12. ATORVASTATIN [Concomitant]
     Active Substance: ATORVASTATIN
  13. AYR [GUAIFENESIN;THEOPHYLLINE] [Concomitant]
  14. VITAMIN D2 [Concomitant]
     Active Substance: ERGOCALCIFEROL

REACTIONS (5)
  - Injection site irritation [Unknown]
  - Injection site rash [Unknown]
  - Middle insomnia [Unknown]
  - Wrong technique in device usage process [Unknown]
  - Product use issue [Unknown]

NARRATIVE: CASE EVENT DATE: 2021
